FAERS Safety Report 9209668 (Version 2)
Quarter: 2014Q1

REPORT INFORMATION
  Report Type: Spontaneous
  Country: US (occurrence: US)
  Receive Date: 20130404
  Receipt Date: 20140130
  Transmission Date: 20141002
  Serious: Yes (Hospitalization, Other)
  Sender: FDA-Public Use
  Company Number: US-BAYER-2013-040158

PATIENT
  Age: 27 Year
  Sex: Female

DRUGS (4)
  1. YAZ [Suspect]
     Dosage: UNK
     Dates: start: 200705
  2. YASMIN [Suspect]
     Dosage: UNK
     Dates: start: 200705
  3. VICODIN [Concomitant]
     Indication: PAIN
  4. ZOFRAN [Concomitant]
     Indication: NAUSEA

REACTIONS (5)
  - Gallbladder injury [None]
  - Cholecystitis chronic [None]
  - Pain [None]
  - Injury [None]
  - Pain [None]
